FAERS Safety Report 5787408-7 (Version None)
Quarter: 2008Q2

REPORT INFORMATION
  Report Type: 
  Country: None (occurrence: None)
  Receive Date: 20080623
  Receipt Date: 20080623
  Transmission Date: 20081010
  Serious: Yes (Hospitalization)
  Sender: FDA-Public Use
  Company Number: None

PATIENT
  Age: 69 Year
  Sex: Male
  Weight: 83 kg

DRUGS (19)
  1. VANCOMYCIN [Suspect]
     Indication: ACUTE MYELOID LEUKAEMIA
     Dosage: 1.5 GM Q24H IV BOLUS
     Route: 040
     Dates: start: 20071102, end: 20071205
  2. VANCOMYCIN [Suspect]
     Indication: FEBRILE NEUTROPENIA
     Dosage: 1.5 GM Q24H IV BOLUS
     Route: 040
     Dates: start: 20071102, end: 20071205
  3. ZOSYN [Suspect]
     Indication: FEBRILE NEUTROPENIA
     Dosage: 4.5 GM Q6HH IV BOLUS
     Route: 040
     Dates: start: 20071102, end: 20071211
  4. ACYCLOVIR SODIUM [Concomitant]
  5. ALLOPURINOL [Concomitant]
  6. ABELCET NEBS [Concomitant]
  7. AMBISOME [Concomitant]
  8. DAPTOMYCIN [Concomitant]
  9. DOXYCYCLINE HCL [Concomitant]
  10. FEXOFENADINE [Concomitant]
  11. HYDROCORTISONE [Concomitant]
  12. LEVOFLOXACIN [Concomitant]
  13. MEROPENEM [Concomitant]
  14. MICAFUNGIN [Concomitant]
  15. METRONIDAZOLE HCL [Concomitant]
  16. OLMESARTAN MEDOXOMIL [Concomitant]
  17. PANTOPRAZOLE SODIUM [Concomitant]
  18. POSACONAZOLE [Concomitant]
  19. VORICONAZOLE [Concomitant]

REACTIONS (1)
  - NEPHROPATHY TOXIC [None]
